FAERS Safety Report 9166420 (Version 1)
Quarter: 2013Q1

REPORT INFORMATION
  Report Type: Spontaneous
  Country: US (occurrence: US)
  Receive Date: 20130315
  Receipt Date: 20130315
  Transmission Date: 20140127
  Serious: No
  Sender: FDA-Public Use
  Company Number: US-009507513-1303USA005035

PATIENT
  Age: 44 Year
  Sex: Male

DRUGS (3)
  1. BOCEPREVIR [Suspect]
     Indication: HEPATITIS C
     Dosage: UNK
     Route: 048
     Dates: start: 20120402
  2. RIBAVIRIN [Suspect]
     Indication: HEPATITIS C
     Dosage: 600 MG, BID
     Route: 048
     Dates: start: 20120306
  3. PEGASYS [Suspect]
     Indication: HEPATITIS C
     Dosage: 180 MICROGRAM, QW
     Dates: start: 20120306

REACTIONS (7)
  - Ear pain [Unknown]
  - Haemoglobin decreased [Unknown]
  - Anaemia [Unknown]
  - Abdominal discomfort [Unknown]
  - Fatigue [Unknown]
  - White blood cell count decreased [Unknown]
  - Flatulence [Unknown]
